FAERS Safety Report 26198439 (Version 1)
Quarter: 2025Q4

REPORT INFORMATION
  Report Type: Spontaneous
  Country: JP (occurrence: JP)
  Receive Date: 20251224
  Receipt Date: 20251224
  Transmission Date: 20260118
  Serious: Yes (Death)
  Sender: ELI LILLY AND COMPANY
  Company Number: JP-ELI_LILLY_AND_COMPANY-JP202512029235

PATIENT
  Age: 85 Year
  Sex: Female
  Weight: 44.4 kg

DRUGS (15)
  1. VERZENIO [Suspect]
     Active Substance: ABEMACICLIB
     Indication: Breast cancer
     Dosage: 150 MG, BID
     Route: 048
     Dates: start: 20240510, end: 20240515
  2. VERZENIO [Suspect]
     Active Substance: ABEMACICLIB
     Dosage: 50 MG, BID
     Route: 065
     Dates: start: 20240607, end: 20241011
  3. ANASTROZOLE [Concomitant]
     Active Substance: ANASTROZOLE
     Indication: Breast cancer
     Dosage: 1 MG, EACH MORNING
     Route: 048
     Dates: start: 20240126, end: 20240524
  4. FASLODEX [Concomitant]
     Active Substance: FULVESTRANT
     Indication: Breast cancer
     Dosage: UNK UNK, ONCE EVERY TWO WEEKS
     Route: 030
     Dates: start: 20240524
  5. FASLODEX [Concomitant]
     Active Substance: FULVESTRANT
     Dosage: UNK, ONCE EVERY FOUR WEEKS
     Route: 030
     Dates: end: 20240609
  6. CALCIUM CARBONATE\CHOLECALCIFEROL\MAGNESIUM CARBONATE [Concomitant]
     Active Substance: CALCIUM CARBONATE\CHOLECALCIFEROL\MAGNESIUM CARBONATE
     Indication: Hypocalcaemia
     Dosage: 2 DOSAGE FORM, DAILY
     Route: 048
     Dates: start: 20240202, end: 20251006
  7. DENOSUMAB [Concomitant]
     Active Substance: DENOSUMAB
     Indication: Osteoporosis prophylaxis
     Dosage: 60 MG, OTHER
     Route: 058
     Dates: start: 20240202
  8. VOGLIBOSE [Concomitant]
     Active Substance: VOGLIBOSE
     Indication: Type 2 diabetes mellitus
     Dosage: 0.3 MG, TID
     Route: 048
  9. NESINA [Concomitant]
     Active Substance: ALOGLIPTIN BENZOATE
     Indication: Type 2 diabetes mellitus
     Dosage: 25 MG, DAILY
     Route: 048
     Dates: start: 20120820, end: 20250616
  10. ZOLPIDEM TARTRATE [Concomitant]
     Active Substance: ZOLPIDEM TARTRATE
     Indication: Insomnia
     Dosage: 5 MG, DAILY
     Route: 048
  11. CANDESARTAN [Concomitant]
     Active Substance: CANDESARTAN
     Indication: Hypertension
     Dosage: 4 MG, DAILY
     Route: 048
     Dates: start: 20140825
  12. NIFEDIPINE [Concomitant]
     Active Substance: NIFEDIPINE
     Indication: Hypertension
     Dosage: 40 MG, DAILY
     Route: 048
  13. PIRENOXINE [Concomitant]
     Active Substance: PIRENOXINE
     Route: 047
  14. EPINASTINE HYDROCHLORIDE LX [Concomitant]
     Route: 047
  15. GLIMEPIRIDE [Concomitant]
     Active Substance: GLIMEPIRIDE
     Indication: Type 2 diabetes mellitus
     Dosage: 3 MG, DAILY
     Route: 048
     Dates: start: 20210628, end: 20250902

REACTIONS (1)
  - Death [Fatal]

NARRATIVE: CASE EVENT DATE: 20251130
